FAERS Safety Report 4406865-1 (Version None)
Quarter: 2004Q3

REPORT INFORMATION
  Report Type: 
  Country: None (occurrence: None)
  Receive Date: 20040715
  Receipt Date: 20040706
  Transmission Date: 20050211
  Serious: Yes (Hospitalization)
  Sender: FDA-Public Use
  Company Number: 2004045075

PATIENT
  Age: 47 Year
  Sex: Male
  Weight: 80 kg

DRUGS (4)
  1. AMLODIPINE [Suspect]
     Indication: HYPERTENSION
     Dosage: 5 MG (5 MG, 1 IN 1 D), ORAL
     Route: 048
     Dates: start: 20030901, end: 20040523
  2. INDAPAMIDE [Suspect]
     Indication: HYPERTENSION
     Dosage: 6 MG (1.5 MG, 4 IN 1 D), ORAL
     Route: 048
     Dates: start: 20030301, end: 20040523
  3. OCTREOTIDE ACETATE (OCTREOTIDE ACETATE) [Concomitant]
  4. IRBESARTAN (IRBESARTAN) [Suspect]
     Indication: HYPERTENSION
     Dosage: 300 MG (300 MG, 1 IN 1 D), ORAL
     Route: 048
     Dates: start: 20030301, end: 20040523

REACTIONS (2)
  - CIRCULATORY COLLAPSE [None]
  - HYPOTENSION [None]
